FAERS Safety Report 9115599 (Version 1)
Quarter: 2013Q1

REPORT INFORMATION
  Report Type: Spontaneous
  Country: US (occurrence: None)
  Receive Date: 20130221
  Receipt Date: 20130221
  Transmission Date: 20140127
  Serious: Yes (Hospitalization)
  Sender: FDA-Public Use
  Company Number: None

PATIENT
  Sex: Male

DRUGS (1)
  1. STIVARGA 40MG BAYER [Suspect]
     Indication: COLON CANCER
     Dosage: 160MG QD PO
     Route: 048
     Dates: start: 20130125, end: 20130208

REACTIONS (3)
  - Bronchitis [None]
  - Condition aggravated [None]
  - White blood cell count decreased [None]
